FAERS Safety Report 13065563 (Version 1)
Quarter: 2016Q4

REPORT INFORMATION
  Report Type: Spontaneous
  Country: US (occurrence: US)
  Receive Date: 20161227
  Receipt Date: 20161227
  Transmission Date: 20170207
  Serious: No
  Sender: FDA-Public Use
  Company Number: US-BAYER-2016-242838

PATIENT
  Sex: Female

DRUGS (11)
  1. TIZANIDINE. [Concomitant]
     Active Substance: TIZANIDINE
     Dosage: 1-2 TABLETS
  2. LANTUS [Concomitant]
     Active Substance: INSULIN GLARGINE
     Dosage: 60 UNITS AT BED TIME
     Route: 058
  3. ALEVE [Suspect]
     Active Substance: NAPROXEN SODIUM
     Dosage: UNK
  4. PROVENTIL [Concomitant]
     Active Substance: ALBUTEROL
     Dosage: INHALE 3ML EVERY 4 HRS AS NEEDED
  5. PREDNISONE. [Concomitant]
     Active Substance: PREDNISONE
     Dosage: 1 DF, QD
     Route: 048
  6. DULOXETINE. [Concomitant]
     Active Substance: DULOXETINE
     Dosage: 2 DF, QD
     Route: 048
  7. INS [INSULIN] [Concomitant]
     Dosage: INJECTS 4 UNITS THREE TIMES A DAY
     Route: 058
  8. BAYER ASPIRIN [Suspect]
     Active Substance: ASPIRIN
     Dosage: UNK
  9. SALBUTEROL [Concomitant]
     Indication: DYSPNOEA
     Dosage: INHALE 2 PUFF(S), PRN
  10. LYRICA [Concomitant]
     Active Substance: PREGABALIN
     Dosage: 2 DF, QD
     Route: 048
  11. LEVOTHYROXINE. [Concomitant]
     Active Substance: LEVOTHYROXINE
     Dosage: 1 DF, QD (BEFORE BREAKFAST)
     Route: 048

REACTIONS (1)
  - Drug hypersensitivity [Unknown]
